FAERS Safety Report 12948768 (Version 8)
Quarter: 2017Q2

REPORT INFORMATION
  Report Type: Report from Study
  Country: US (occurrence: US)
  Receive Date: 20161116
  Receipt Date: 20170525
  Transmission Date: 20170830
  Serious: Yes (Hospitalization)
  Sender: FDA-Public Use
  Company Number: US-JNJFOC-20161027044

PATIENT
  Age: 72 Year
  Sex: Female

DRUGS (5)
  1. IMBRUVICA [Suspect]
     Active Substance: IBRUTINIB
     Indication: CHRONIC LYMPHOCYTIC LEUKAEMIA
     Route: 048
     Dates: start: 20170404
  2. IMBRUVICA [Suspect]
     Active Substance: IBRUTINIB
     Indication: CHRONIC LYMPHOCYTIC LEUKAEMIA
     Route: 048
     Dates: start: 20161018
  3. ASPIRIN. [Concomitant]
     Active Substance: ASPIRIN
  4. PLAVIX [Concomitant]
     Active Substance: CLOPIDOGREL BISULFATE
  5. IMBRUVICA [Suspect]
     Active Substance: IBRUTINIB
     Indication: CHRONIC LYMPHOCYTIC LEUKAEMIA
     Route: 048
     Dates: start: 20161013, end: 2017

REACTIONS (28)
  - Insomnia [Not Recovered/Not Resolved]
  - Dry mouth [Unknown]
  - Proctalgia [Unknown]
  - Cough [Not Recovered/Not Resolved]
  - Arthralgia [Not Recovered/Not Resolved]
  - Hypoaesthesia [Not Recovered/Not Resolved]
  - Headache [Unknown]
  - Contusion [Unknown]
  - Hypertension [Unknown]
  - Alopecia [Unknown]
  - Flatulence [Unknown]
  - Vomiting [Unknown]
  - Diarrhoea [Unknown]
  - White blood cell count increased [Unknown]
  - Haemorrhage [Unknown]
  - Abdominal pain [Unknown]
  - Adverse drug reaction [Unknown]
  - Angina pectoris [Unknown]
  - Chest discomfort [Unknown]
  - Bone pain [Unknown]
  - Anorectal discomfort [Unknown]
  - Malaise [Unknown]
  - Nausea [Unknown]
  - Faeces discoloured [Unknown]
  - Paraesthesia [Not Recovered/Not Resolved]
  - Fatigue [Unknown]
  - Dyspepsia [Not Recovered/Not Resolved]
  - Increased tendency to bruise [Unknown]

NARRATIVE: CASE EVENT DATE: 2016
